FAERS Safety Report 17422750 (Version 1)
Quarter: 2020Q1

REPORT INFORMATION
  Report Type: Spontaneous
  Country: PL (occurrence: PL)
  Receive Date: 20200215
  Receipt Date: 20200215
  Transmission Date: 20200409
  Serious: Yes (Death, Hospitalization)
  Sender: FDA-Public Use
  Company Number: PL-VISTAPHARM, INC.-VER202002-000321

PATIENT
  Age: 8 Year
  Sex: Female

DRUGS (2)
  1. VALPROIC ACID. [Suspect]
     Active Substance: VALPROIC ACID
     Indication: EPILEPSY
     Dosage: UNKNOWN
  2. VALPROIC ACID. [Suspect]
     Active Substance: VALPROIC ACID
     Indication: INTELLECTUAL DISABILITY

REACTIONS (4)
  - Liver injury [Fatal]
  - Respiratory failure [Fatal]
  - Pancreatitis acute [Fatal]
  - Circulatory collapse [Fatal]
